FAERS Safety Report 14917536 (Version 1)
Quarter: 2018Q2

REPORT INFORMATION
  Report Type: Spontaneous
  Country: US (occurrence: US)
  Receive Date: 20180521
  Receipt Date: 20180521
  Transmission Date: 20180711
  Serious: Yes (Other)
  Sender: FDA-Public Use
  Company Number: PHEH2018US018194

PATIENT
  Sex: Female

DRUGS (1)
  1. TERAZOSIN [Suspect]
     Active Substance: TERAZOSIN\TERAZOSIN HYDROCHLORIDE
     Indication: PRODUCT USED FOR UNKNOWN INDICATION
     Dosage: 5 MG, QHS
     Route: 048

REACTIONS (7)
  - White blood cell count abnormal [Unknown]
  - Ear disorder [Unknown]
  - Headache [Unknown]
  - Haematocrit abnormal [Unknown]
  - Conjunctivitis bacterial [Unknown]
  - Scab [Unknown]
  - Urinary tract inflammation [Unknown]
